FAERS Safety Report 5329950-9 (Version None)
Quarter: 2007Q2

REPORT INFORMATION
  Report Type: 
  Country: None (occurrence: None)
  Receive Date: 20070521
  Receipt Date: 20070511
  Transmission Date: 20071010
  Serious: Yes (Hospitalization)
  Sender: FDA-Public Use
  Company Number: SE-JNJFOC-20060704957

PATIENT
  Sex: Female
  Weight: 69 kg

DRUGS (6)
  1. TMC114 [Suspect]
     Route: 048
  2. TMC114 [Suspect]
     Indication: HIV INFECTION
     Route: 048
  3. RITONAVIR [Suspect]
     Indication: HIV INFECTION
     Route: 048
  4. ABACAVIR [Concomitant]
     Indication: HIV INFECTION
     Route: 048
  5. TRIZIVIR [Concomitant]
     Indication: HIV INFECTION
     Route: 048
  6. VIREAD [Concomitant]
     Indication: HIV INFECTION
     Route: 048

REACTIONS (5)
  - ABDOMINAL PAIN [None]
  - DEHYDRATION [None]
  - DIARRHOEA [None]
  - NAUSEA [None]
  - RENAL FAILURE [None]
